FAERS Safety Report 7987139-9 (Version None)
Quarter: 2011Q4

REPORT INFORMATION
  Report Type: 
  Country: None (occurrence: None)
  Receive Date: 20111216
  Receipt Date: 20110322
  Transmission Date: 20120403
  Serious: No
  Sender: FDA-Public Use
  Company Number: US-BRISTOL-MYERS SQUIBB COMPANY-15625627

PATIENT
  Age: 51 Year
  Sex: Female
  Weight: 96 kg

DRUGS (3)
  1. ABILIFY [Suspect]
     Dosage: TAKEN OFF FOR ABOUT 2 MONTHS
  2. TOPAMAX [Concomitant]
  3. ZOLOFT [Concomitant]

REACTIONS (2)
  - INTERVERTEBRAL DISC DEGENERATION [None]
  - DYSKINESIA [None]
